FAERS Safety Report 8561076-3 (Version None)
Quarter: 2012Q3

REPORT INFORMATION
  Report Type: 
  Country: None (occurrence: None)
  Receive Date: 20120802
  Receipt Date: 20120312
  Transmission Date: 20120928
  Serious: Yes (Hospitalization)
  Sender: FDA-Public Use
  Company Number: US-BRISTOL-MYERS SQUIBB COMPANY-16425639

PATIENT
  Age: 55 Year
  Sex: Male
  Weight: 73 kg

DRUGS (3)
  1. NORVIR [Suspect]
  2. REYATAZ [Suspect]
     Dates: start: 20080818
  3. TRUVADA [Concomitant]

REACTIONS (1)
  - NEPHROLITHIASIS [None]
